FAERS Safety Report 16473156 (Version 8)
Quarter: 2025Q1

REPORT INFORMATION
  Report Type: Report from Study
  Country: JP (occurrence: JP)
  Receive Date: 20190625
  Receipt Date: 20250105
  Transmission Date: 20250409
  Serious: Yes (Hospitalization, Other)
  Sender: BRISTOL-MYERS SQUIBB COMPANY
  Company Number: JP-BRISTOL-MYERS SQUIBB COMPANY-BMS-2019-013296

PATIENT
  Age: 60 Year
  Sex: Female
  Weight: 70.2 kg

DRUGS (4)
  1. NIVOLUMAB [Suspect]
     Active Substance: NIVOLUMAB
     Indication: Malignant melanoma
     Route: 041
     Dates: start: 20180921, end: 20181122
  2. NIVOLUMAB [Suspect]
     Active Substance: NIVOLUMAB
     Route: 041
     Dates: start: 20190515
  3. NIVOLUMAB [Suspect]
     Active Substance: NIVOLUMAB
     Route: 041
     Dates: start: 2019, end: 2020
  4. IPILIMUMAB [Suspect]
     Active Substance: IPILIMUMAB
     Indication: Malignant melanoma
     Route: 041
     Dates: start: 20180921, end: 20181122

REACTIONS (10)
  - Pruritus [Recovering/Resolving]
  - Rash maculo-papular [Recovering/Resolving]
  - Enterocolitis [Recovering/Resolving]
  - Hypophysitis [Recovering/Resolving]
  - Hypothyroidism [Recovering/Resolving]
  - Iritis [Recovering/Resolving]
  - Liver disorder [Unknown]
  - Uveitis [Unknown]
  - Secondary adrenocortical insufficiency [Recovering/Resolving]
  - Diarrhoea [Unknown]

NARRATIVE: CASE EVENT DATE: 20180923
